FAERS Safety Report 5414204-2 (Version None)
Quarter: 2007Q3

REPORT INFORMATION
  Report Type: 
  Country: None (occurrence: None)
  Receive Date: 20070814
  Receipt Date: 20070802
  Transmission Date: 20080115
  Serious: Yes (Other)
  Sender: FDA-Public Use
  Company Number: GB-PFIZER INC-2007064822

PATIENT

DRUGS (1)
  1. SALAZOPYRIN [Suspect]

REACTIONS (1)
  - WEIGHT DECREASED [None]
